FAERS Safety Report 17930934 (Version 1)
Quarter: 2020Q2

REPORT INFORMATION
  Report Type: Spontaneous
  Country: DE (occurrence: DE)
  Receive Date: 20200623
  Receipt Date: 20200623
  Transmission Date: 20200714
  Serious: Yes (Hospitalization)
  Sender: FDA-Public Use
  Company Number: DE-TEVA-2020-DE-1788888

PATIENT
  Age: 92 Year
  Sex: Male

DRUGS (17)
  1. CYCLOPHOSPHAMID [Suspect]
     Active Substance: CYCLOPHOSPHAMIDE
     Dosage: 470 MG
     Route: 065
     Dates: end: 20190815
  2. COTRIM FORTE 800MG/160MG [Concomitant]
     Dosage: 800|160 MG, 0.5-0-0-0
  3. RITUXIMAB. [Suspect]
     Active Substance: RITUXIMAB
     Dosage: 570 MG,
     Route: 065
     Dates: end: 20190815
  4. TORASEMID [Concomitant]
     Active Substance: TORSEMIDE
     Dosage: 10 MG, 1-0.5-0-0
  5. ATORVASTATIN [Concomitant]
     Active Substance: ATORVASTATIN
     Dosage: 20 MILLIGRAM DAILY; 20 MG, 0-0-1-0
  6. ALLOPURINOL. [Concomitant]
     Active Substance: ALLOPURINOL
     Dosage: 150 MILLIGRAM DAILY; 150 MG, 0-1-0-0
  7. KALIUM RETARD [Concomitant]
     Dosage: 24 MILLIMOL DAILY; 8 MMOL, 1-1-1-0
  8. MACROGOL [Concomitant]
     Active Substance: POLYETHYLENE GLYCOLS
     Dosage: 10 MG, 1-0.5-0-0
  9. VINCRISTIN [Suspect]
     Active Substance: VINCRISTINE
     Dosage: 1 MG
     Route: 065
     Dates: end: 20190815
  10. APIXABAN [Concomitant]
     Active Substance: APIXABAN
     Dosage: 2.5 MG, 1-0-1-0
  11. TROSPIUM [Concomitant]
     Active Substance: TROSPIUM
     Dosage: 15 MILLIGRAM DAILY; 15MG, 0-0-0-0.5
  12. XIPAMID [Concomitant]
     Active Substance: XIPAMIDE
     Dosage: 10 MILLIGRAM DAILY; 10 MG, 1-0-0-0
  13. DOXORUBICIN [Suspect]
     Active Substance: DOXORUBICIN
     Dosage: 30 MG
     Route: 065
     Dates: end: 20190815
  14. PANTOPRAZOL [Concomitant]
     Active Substance: PANTOPRAZOLE SODIUM
     Dosage: 40 MILLIGRAM DAILY; 40 MG, 1-0-0-0
  15. PREGABALIN. [Concomitant]
     Active Substance: PREGABALIN
     Dosage: 25 MILLIGRAM DAILY; 25 MG, 0-0-1-0
  16. COLECALCIFEROL (VITAMIN D) [Concomitant]
     Dosage: 1000 IE, 1-0-0-0
  17. TAMSULOSIN [Concomitant]
     Active Substance: TAMSULOSIN
     Dosage: .4 MILLIGRAM DAILY; 0.4 MG, 1-0-0-0

REACTIONS (2)
  - Dysuria [Recovered/Resolved]
  - Pyrexia [Recovered/Resolved]
